FAERS Safety Report 4470517-2 (Version None)
Quarter: 2004Q4

REPORT INFORMATION
  Report Type: 
  Country: None (occurrence: None)
  Receive Date: 20041001
  Receipt Date: 20040921
  Transmission Date: 20050328
  Serious: Yes (Other)
  Sender: FDA-Public Use
  Company Number: 2004-09-1692

PATIENT
  Age: 7 Year
  Sex: Male

DRUGS (1)
  1. CLARINEX [Suspect]
     Dosage: 5 ML ORAL
     Route: 048

REACTIONS (2)
  - DELIRIUM [None]
  - HALLUCINATION [None]
